FAERS Safety Report 21472195 (Version 2)
Quarter: 2022Q4

REPORT INFORMATION
  Report Type: Report from Study
  Country: US (occurrence: US)
  Receive Date: 20221018
  Receipt Date: 20221031
  Transmission Date: 20230113
  Serious: Yes (Death, Other)
  Sender: FDA-Public Use
  Company Number: US-GLAXOSMITHKLINE-US2022130069

PATIENT

DRUGS (1)
  1. BELANTAMAB MAFODOTIN [Suspect]
     Active Substance: BELANTAMAB MAFODOTIN
     Indication: Plasma cell myeloma
     Dosage: UNK
     Dates: start: 20220726, end: 20220913

REACTIONS (3)
  - Death [Fatal]
  - Visual acuity reduced [Unknown]
  - Keratopathy [Unknown]

NARRATIVE: CASE EVENT DATE: 20220908
